FAERS Safety Report 9888445 (Version 2)
Quarter: 2014Q1

REPORT INFORMATION
  Report Type: Spontaneous
  Country: JP (occurrence: JP)
  Receive Date: 20140211
  Receipt Date: 20140211
  Transmission Date: 20141002
  Serious: Yes (Other)
  Sender: FDA-Public Use
  Company Number: JP-PFIZER INC-2014031215

PATIENT
  Age: 79 Year
  Sex: Male

DRUGS (1)
  1. SPIRONOLACTONE [Suspect]
     Dosage: UNK
     Route: 048

REACTIONS (1)
  - Deafness [Unknown]
